FAERS Safety Report 4929200-9 (Version None)
Quarter: 2006Q1

REPORT INFORMATION
  Report Type: 
  Country: None (occurrence: None)
  Receive Date: 20060301
  Receipt Date: 20051019
  Transmission Date: 20060701
  Serious: Yes (Hospitalization, Disabling, Other)
  Sender: FDA-Public Use
  Company Number: US-MERCK-0510USA08348

PATIENT
  Age: 51 Year
  Sex: Male
  Weight: 109 kg

DRUGS (8)
  1. VIOXX [Suspect]
     Indication: JOINT INJURY
     Route: 048
     Dates: start: 20030101, end: 20030101
  2. AVAPRO [Concomitant]
     Indication: HYPERTENSION
     Route: 048
     Dates: start: 20030101, end: 20040501
  3. LASIX [Concomitant]
     Route: 048
     Dates: start: 19970101
  4. DYAZIDE [Concomitant]
     Route: 048
     Dates: start: 19970101
  5. ASPIRIN [Concomitant]
     Route: 048
     Dates: start: 19940101
  6. LIPITOR [Concomitant]
     Route: 048
     Dates: start: 19970101
  7. TYLENOL (CAPLET) [Concomitant]
     Route: 048
     Dates: start: 19950101
  8. ALEVE [Concomitant]
     Route: 048
     Dates: start: 19950101

REACTIONS (4)
  - CARDIAC DISORDER [None]
  - DIABETES MELLITUS [None]
  - KNEE OPERATION [None]
  - MYOCARDIAL INFARCTION [None]
